FAERS Safety Report 7359394-X (Version None)
Quarter: 2011Q1

REPORT INFORMATION
  Report Type: 
  Country: None (occurrence: None)
  Receive Date: 20110317
  Receipt Date: 20110308
  Transmission Date: 20110831
  Serious: Yes (Hospitalization)
  Sender: FDA-Public Use
  Company Number: US-ASTRAZENECA-2011SE12972

PATIENT
  Age: 85 Year
  Sex: Male

DRUGS (20)
  1. THEOPHYLLINE [Concomitant]
     Route: 048
  2. HYDROCODONE-ACETAMINOPHEN [Concomitant]
  3. CHLORPROMAZINE HYDROCHLORIDE [Concomitant]
     Route: 048
  4. METFORMIN HYDROCHLORIDE [Concomitant]
     Route: 048
  5. ONDANSETRON [Concomitant]
  6. TIZANIDINE HCL [Interacting]
     Indication: BACK PAIN
     Route: 048
  7. SIMVASTATIN [Concomitant]
     Route: 048
  8. DICLOFENAC [Concomitant]
     Indication: ARTHRALGIA
  9. LISINOPRIL [Interacting]
     Route: 048
  10. LIDOCAINE [Concomitant]
     Dosage: FOR 12 HOURS DAILY
     Route: 061
  11. PRAMIPEXOLE DIHYDROCHLORIDE [Concomitant]
     Route: 048
  12. DICLOFENAC [Concomitant]
     Indication: OSTEOARTHRITIS
  13. LISINOPRIL [Suspect]
     Route: 048
  14. ACETAMINOPHEN [Concomitant]
  15. OMEPRAZOLE [Concomitant]
     Route: 048
  16. GUAIFENESIN [Concomitant]
  17. CODEINE COUGH SYRUP [Concomitant]
  18. CHLORPROMAZINE HYDROCHLORIDE [Concomitant]
     Route: 048
  19. CITALOPRAM [Concomitant]
     Route: 048
  20. FINASTERIDE [Concomitant]
     Route: 048

REACTIONS (3)
  - BRADYCARDIA [None]
  - HYPOTENSION [None]
  - DRUG INTERACTION [None]
